FAERS Safety Report 23584415 (Version 1)
Quarter: 2024Q1

REPORT INFORMATION
  Report Type: Spontaneous
  Country: GB (occurrence: GB)
  Receive Date: 20240301
  Receipt Date: 20240301
  Transmission Date: 20240409
  Serious: Yes (Other)
  Sender: FDA-Public Use
  Company Number: None

PATIENT
  Age: 57 Year
  Sex: Female
  Weight: 64 kg

DRUGS (7)
  1. LEFLUNOMIDE [Suspect]
     Active Substance: LEFLUNOMIDE
     Indication: Rheumatoid arthritis
     Dosage: 10 MG
     Dates: start: 2021
  2. LEFLUNOMIDE [Suspect]
     Active Substance: LEFLUNOMIDE
     Dosage: 15 MG
     Dates: start: 2023
  3. LEFLUNOMIDE [Suspect]
     Active Substance: LEFLUNOMIDE
     Dosage: 20 MG
     Dates: start: 202310
  4. DISOPYRAMIDE PHOSPHATE [Suspect]
     Active Substance: DISOPYRAMIDE PHOSPHATE
     Indication: Dyspnoea
     Dosage: 250 MG, QD
     Dates: start: 202308
  5. DISOPYRAMIDE [Suspect]
     Active Substance: DISOPYRAMIDE
     Indication: Dyspnoea
     Dosage: 100 MG, TID
     Dates: start: 20240130
  6. VERAPAMIL HYDROCHLORIDE [Suspect]
     Active Substance: VERAPAMIL HYDROCHLORIDE
     Indication: Dyspnoea
     Dosage: 120 MG
     Dates: start: 2021
  7. TREHALOSE [Concomitant]
     Active Substance: TREHALOSE
     Indication: Dry eye
     Dosage: UNK

REACTIONS (9)
  - Deep vein thrombosis [Not Recovered/Not Resolved]
  - Pain in extremity [Recovering/Resolving]
  - Peripheral swelling [Not Recovered/Not Resolved]
  - Nasopharyngitis [Recovered/Resolved]
  - Cough [Recovered/Resolved]
  - Pyrexia [Recovered/Resolved]
  - Influenza [Recovered/Resolved]
  - Oropharyngeal pain [Recovered/Resolved]
  - Supraventricular extrasystoles [Unknown]

NARRATIVE: CASE EVENT DATE: 20231201
